FAERS Safety Report 5977139-2 (Version None)
Quarter: 2008Q4

REPORT INFORMATION
  Report Type: 
  Country: None (occurrence: None)
  Receive Date: 20081201
  Receipt Date: 20081201
  Transmission Date: 20090506
  Serious: Yes (Other)
  Sender: FDA-Public Use
  Company Number: None

PATIENT

DRUGS (1)
  1. ISOSORBIDE MONONITRATE [Suspect]

REACTIONS (5)
  - DIZZINESS [None]
  - HEADACHE [None]
  - HYPOTENSION [None]
  - LETHARGY [None]
  - PRODUCT QUALITY ISSUE [None]
